FAERS Safety Report 8990807 (Version 1)
Quarter: 2012Q4

REPORT INFORMATION
  Report Type: 
  Country: VN (occurrence: VN)
  Receive Date: 20121231
  Receipt Date: 20121231
  Transmission Date: 20130627
  Serious: Yes (Death, Other)
  Sender: FDA-Public Use
  Company Number: PHHY2012VN024969

PATIENT
  Age: 75 Year
  Sex: Female

DRUGS (2)
  1. GLIVEC [Suspect]
     Indication: GASTROINTESTINAL STROMAL TUMOUR
     Dosage: 400 mg, per day
     Route: 048
  2. GLIVEC [Suspect]
     Dosage: 600 mg, per day
     Route: 048
     Dates: start: 20120321

REACTIONS (4)
  - Death [Fatal]
  - Neoplasm progression [Not Recovered/Not Resolved]
  - Malignant neoplasm progression [Not Recovered/Not Resolved]
  - Anaemia [Unknown]
